FAERS Safety Report 16323101 (Version 2)
Quarter: 2019Q2

REPORT INFORMATION
  Report Type: Spontaneous
  Country: GB (occurrence: GB)
  Receive Date: 20190517
  Receipt Date: 20190523
  Transmission Date: 20190711
  Serious: Yes (Death)
  Sender: FDA-Public Use
  Company Number: GB-ABBVIE-19K-167-2785251-00

PATIENT
  Age: 63 Year
  Sex: Male

DRUGS (2)
  1. ADALIMUMAB [Suspect]
     Active Substance: ADALIMUMAB
     Indication: PSORIASIS
     Route: 058
     Dates: start: 20120619
  2. CETIRIZINE [Concomitant]
     Active Substance: CETIRIZINE HYDROCHLORIDE
     Indication: PSORIASIS
     Route: 048
     Dates: start: 20140603

REACTIONS (4)
  - Oropharyngeal pain [Fatal]
  - Respiratory disorder [Fatal]
  - Influenza like illness [Fatal]
  - Dysphagia [Unknown]

NARRATIVE: CASE EVENT DATE: 20190210
